FAERS Safety Report 8102076-7 (Version None)
Quarter: 2012Q1

REPORT INFORMATION
  Report Type: 
  Country: None (occurrence: None)
  Receive Date: 20120131
  Receipt Date: 20120127
  Transmission Date: 20120608
  Serious: Yes (Other)
  Sender: FDA-Public Use
  Company Number: FR-MERCK-1201FRA00108

PATIENT
  Age: 54 Year
  Sex: Female

DRUGS (2)
  1. FENOFIBRATE [Concomitant]
     Route: 065
  2. JANUMET [Suspect]
     Indication: DIABETES MELLITUS
     Route: 048

REACTIONS (1)
  - PANCREATIC CARCINOMA [None]
